FAERS Safety Report 7055333-X (Version None)
Quarter: 2010Q4

REPORT INFORMATION
  Report Type: 
  Country: None (occurrence: None)
  Receive Date: 20101021
  Receipt Date: 20101012
  Transmission Date: 20110411
  Serious: Yes (Death, Other)
  Sender: FDA-Public Use
  Company Number: US-JNJFOC-20101004796

PATIENT
  Age: 34 Year

DRUGS (1)
  1. ORTHOCLONE OKT3 [Suspect]
     Indication: PROPHYLAXIS AGAINST TRANSPLANT REJECTION
     Route: 065

REACTIONS (4)
  - ARRHYTHMIA [None]
  - BACTERIAL TEST [None]
  - GASTROINTESTINAL NECROSIS [None]
  - MYOCARDIAL INFARCTION [None]
